FAERS Safety Report 18861740 (Version 2)
Quarter: 2021Q1

REPORT INFORMATION
  Report Type: Spontaneous
  Country: FR (occurrence: FR)
  Receive Date: 20210208
  Receipt Date: 20210215
  Transmission Date: 20210420
  Serious: Yes (Death, Hospitalization, Other)
  Sender: FDA-Public Use
  Company Number: NVSC2021FR028321

PATIENT
  Age: 51 Year
  Sex: Male
  Weight: 90 kg

DRUGS (9)
  1. METFORMIN [Concomitant]
     Active Substance: METFORMIN HYDROCHLORIDE
     Indication: DIABETES MELLITUS
     Dosage: UNK
     Route: 065
  2. SOMATULINE LP [Concomitant]
     Active Substance: LANREOTIDE ACETATE
     Indication: NEUROENDOCRINE TUMOUR
     Dosage: 120 MG,EVERY 21 DAYS
     Route: 058
     Dates: start: 20201112
  3. ORACILIN [Concomitant]
     Indication: SPLENECTOMY
     Dosage: 1000 UNK, DAILY
     Route: 048
  4. LUTATHERA [Suspect]
     Active Substance: LUTETIUM OXODOTREOTIDE LU-177
     Indication: PANCREATIC NEUROENDOCRINE TUMOUR METASTATIC
     Dosage: 7.045 GBQ (INJECTABLE)
     Route: 042
     Dates: start: 20200616
  5. LUTATHERA [Suspect]
     Active Substance: LUTETIUM OXODOTREOTIDE LU-177
     Dosage: 7.140 GBQ (INJECTABLE)
     Route: 065
     Dates: start: 20200924
  6. GLICLAZIDE [Concomitant]
     Active Substance: GLICLAZIDE
     Indication: DIABETES MELLITUS
     Dosage: UNK
     Route: 065
  7. LUTATHERA [Suspect]
     Active Substance: LUTETIUM OXODOTREOTIDE LU-177
     Dosage: 7.190 GBQ (INJECTABLE)
     Route: 042
     Dates: start: 20200806
  8. XGEVA [Concomitant]
     Active Substance: DENOSUMAB
     Indication: HYPERCALCAEMIA
     Dosage: 120 MG, QMO
     Route: 058
     Dates: start: 20201111
  9. LUTATHERA [Suspect]
     Active Substance: LUTETIUM OXODOTREOTIDE LU-177
     Dosage: 7043 MBQ (INJECTABLE) (CUMULATED ACTIVITY 28.42 GBQ)
     Route: 042
     Dates: start: 20201111

REACTIONS (32)
  - Thrombocytopenia [Unknown]
  - Blood fibrinogen decreased [Unknown]
  - Sinus tachycardia [Unknown]
  - Streptococcal infection [Unknown]
  - Fournier^s gangrene [Fatal]
  - Haematochezia [Unknown]
  - Disseminated intravascular coagulation [Unknown]
  - Cellulitis [Unknown]
  - Incoherent [Unknown]
  - Prothrombin time shortened [Unknown]
  - Acute myeloid leukaemia [Fatal]
  - Decubitus ulcer [Unknown]
  - General physical health deterioration [Unknown]
  - Diarrhoea [Unknown]
  - Second primary malignancy [Fatal]
  - Septic shock [Unknown]
  - Hyperleukocytosis [Unknown]
  - Lactic acidosis [Unknown]
  - Hepatic lesion [Unknown]
  - Multiple organ dysfunction syndrome [Fatal]
  - Haemorrhage [Unknown]
  - Cardio-respiratory arrest [Unknown]
  - Hepatorenal failure [Unknown]
  - Cardiac arrest [Unknown]
  - Anaemia [Unknown]
  - Somnolence [Unknown]
  - Hypophosphataemia [Unknown]
  - Peritonsillar abscess [Unknown]
  - Haemorrhoids [Unknown]
  - Asthenia [Unknown]
  - Abdominal pain [Unknown]
  - Hypotension [Unknown]

NARRATIVE: CASE EVENT DATE: 20201105
